FAERS Safety Report 9123628 (Version 6)
Quarter: 2014Q1

REPORT INFORMATION
  Report Type: Report from Study
  Country: FR (occurrence: FR)
  Receive Date: 20130227
  Receipt Date: 20140129
  Transmission Date: 20141002
  Serious: Yes (Hospitalization)
  Sender: FDA-Public Use
  Company Number: FR-ROCHE-1192041

PATIENT
  Age: 66 Year
  Sex: Female
  Weight: 50 kg

DRUGS (14)
  1. TRASTUZUMAB EMTANSINE [Suspect]
     Indication: BREAST CANCER
     Dosage: LAST DOSE TAKEN ON 23/JAN/2013: 148 MG
     Route: 042
     Dates: start: 20120217
  2. TRASTUZUMAB [Suspect]
     Indication: BREAST CANCER
     Dosage: START DATE: 04/DEC/2013
     Route: 042
  3. ZOMETA [Concomitant]
     Indication: METASTASES TO BONE
     Route: 065
     Dates: start: 20111101
  4. COSOPT [Concomitant]
     Indication: GLAUCOMA
  5. LYRICA [Concomitant]
     Indication: METASTATIC PAIN
     Route: 065
     Dates: start: 20111107
  6. OXYCONTIN [Concomitant]
     Indication: METASTATIC PAIN
     Route: 065
     Dates: start: 20120216
  7. OXYNORM [Concomitant]
     Indication: METASTATIC PAIN
     Route: 065
     Dates: start: 20120216
  8. COAPROVEL [Concomitant]
     Indication: HYPERTENSION
  9. SEROPLEX [Concomitant]
     Indication: DEPRESSION
     Route: 065
     Dates: start: 20120309
  10. MOTILIUM (FRANCE) [Concomitant]
     Indication: NAUSEA
     Route: 065
     Dates: start: 20120330
  11. CORTANCYL [Concomitant]
     Indication: NAUSEA
     Route: 065
     Dates: start: 20120330
  12. CLASTOBAN [Concomitant]
     Indication: METASTASES TO BONE
     Route: 065
     Dates: start: 20130102
  13. DAFALGAN CODEINE [Concomitant]
     Indication: METASTATIC PAIN
     Route: 065
     Dates: start: 20121123
  14. PERTUZUMAB [Suspect]
     Indication: BREAST CANCER
     Dosage: LAST DOSE GIVEN 23/JAN/2013, DOSE 420 MG
     Route: 042
     Dates: start: 20120217

REACTIONS (2)
  - Bronchitis [Recovered/Resolved]
  - Dehydration [Recovered/Resolved]
